FAERS Safety Report 7673921-4 (Version None)
Quarter: 2011Q3

REPORT INFORMATION
  Report Type: 
  Country: None (occurrence: None)
  Receive Date: 20110810
  Receipt Date: 20110419
  Transmission Date: 20111222
  Serious: No
  Sender: FDA-Public Use
  Company Number: US-GLAXOSMITHKLINE-A0923579A

PATIENT
  Age: 23 Year
  Sex: Female

DRUGS (2)
  1. PAROXETINE HCL [Suspect]
     Indication: DEPRESSION
     Dosage: 20MG PER DAY
     Route: 048
     Dates: start: 20110418
  2. HORMONE [Concomitant]

REACTIONS (5)
  - CRYING [None]
  - HEART RATE INCREASED [None]
  - MYDRIASIS [None]
  - PARAESTHESIA [None]
  - SOMNOLENCE [None]
